FAERS Safety Report 7162865-2 (Version None)
Quarter: 2010Q4

REPORT INFORMATION
  Report Type: 
  Country: None (occurrence: None)
  Receive Date: 20101215
  Receipt Date: 20100104
  Transmission Date: 20110411
  Serious: Yes (Death)
  Sender: FDA-Public Use
  Company Number: US-PFIZER INC-2010000635

PATIENT
  Age: 34 Year
  Sex: Female

DRUGS (4)
  1. PREGABALIN [Suspect]
     Route: 048
  2. PROPOXYPHENE HYDROCHLORIDE [Suspect]
     Route: 048
  3. BACLOFEN [Suspect]
     Route: 048
  4. TRAZODONE HCL [Suspect]
     Route: 048

REACTIONS (3)
  - CARDIAC ARREST [None]
  - COMPLETED SUICIDE [None]
  - RESPIRATORY ARREST [None]
